FAERS Safety Report 6871550-3 (Version None)
Quarter: 2010Q3

REPORT INFORMATION
  Report Type: 
  Country: None (occurrence: None)
  Receive Date: 20100723
  Receipt Date: 20100712
  Transmission Date: 20110219
  Serious: Yes (Hospitalization, Other)
  Sender: FDA-Public Use
  Company Number: PHHY2010IT38018

PATIENT
  Sex: Male

DRUGS (2)
  1. GLEEVEC [Suspect]
     Indication: GASTROINTESTINAL STROMAL TUMOUR
     Dosage: 100 MG, UNK
     Route: 048
     Dates: start: 20100507, end: 20100607
  2. QUINAZIDE [Concomitant]
     Indication: HYPERTENSION

REACTIONS (6)
  - ABDOMINAL PAIN [None]
  - ASCITES [None]
  - BILIARY DRAINAGE [None]
  - CHOLECYSTECTOMY [None]
  - PERICARDIAL EFFUSION [None]
  - PLEURAL EFFUSION [None]
